FAERS Safety Report 7706941-1 (Version None)
Quarter: 2011Q3

REPORT INFORMATION
  Report Type: 
  Country: None (occurrence: None)
  Receive Date: 20110824
  Receipt Date: 20110818
  Transmission Date: 20111222
  Serious: Yes (Hospitalization)
  Sender: FDA-Public Use
  Company Number: GB-GLAXOSMITHKLINE-B0740896A

PATIENT
  Age: 31 Year
  Sex: Female

DRUGS (7)
  1. LORAZEPAM [Suspect]
     Indication: PRODUCT USED FOR UNKNOWN INDICATION
     Route: 065
  2. TRAMADOL HCL [Concomitant]
  3. PROCYCLIDINE HYDROCHLORIDE 2MG TAB [Suspect]
     Indication: PRODUCT USED FOR UNKNOWN INDICATION
     Route: 065
  4. MIRTAZAPINE [Suspect]
     Indication: PRODUCT USED FOR UNKNOWN INDICATION
     Route: 065
  5. QUETIAPINE [Suspect]
     Indication: PRODUCT USED FOR UNKNOWN INDICATION
     Route: 065
  6. PAROXETINE HCL [Suspect]
     Indication: PRODUCT USED FOR UNKNOWN INDICATION
     Dosage: 20MG THREE TIMES PER DAY
     Route: 048
     Dates: start: 19970101, end: 20110501
  7. CLONAZEPAM [Suspect]
     Indication: PRODUCT USED FOR UNKNOWN INDICATION
     Route: 065

REACTIONS (14)
  - SEROTONIN SYNDROME [None]
  - DEREALISATION [None]
  - HYPOAESTHESIA ORAL [None]
  - MUSCULOSKELETAL STIFFNESS [None]
  - VISUAL IMPAIRMENT [None]
  - SUICIDAL IDEATION [None]
  - APHASIA [None]
  - INCONTINENCE [None]
  - LIP DISCOLOURATION [None]
  - DISSOCIATION [None]
  - DISORIENTATION [None]
  - MUSCLE SPASMS [None]
  - TREMOR [None]
  - PARAESTHESIA [None]
